FAERS Safety Report 11675512 (Version 1)
Quarter: 2015Q4

REPORT INFORMATION
  Report Type: Spontaneous
  Country: US (occurrence: US)
  Receive Date: 20151027
  Receipt Date: 20151027
  Transmission Date: 20160304
  Serious: No
  Sender: FDA-Public Use
  Company Number: US-ELI_LILLY_AND_COMPANY-US201009000512

PATIENT
  Sex: Female

DRUGS (1)
  1. FORTEO [Suspect]
     Active Substance: TERIPARATIDE
     Indication: OSTEOPOROSIS
     Dosage: 20 UG, DAILY (1/D)
     Dates: start: 200903

REACTIONS (20)
  - Sensory disturbance [Unknown]
  - Muscular weakness [Unknown]
  - Sinusitis [Unknown]
  - Tonsillitis [Unknown]
  - Pyrexia [Unknown]
  - Abdominal pain upper [Unknown]
  - Oropharyngeal pain [Unknown]
  - Injection site bruising [Unknown]
  - Dysphagia [Unknown]
  - Hallucination [Unknown]
  - Urethral prolapse [Unknown]
  - Genital discharge [Unknown]
  - Diarrhoea [Unknown]
  - Balance disorder [Unknown]
  - Vomiting [Unknown]
  - Cystitis [Unknown]
  - Pain in extremity [Unknown]
  - Dehydration [Unknown]
  - Haematinuria [Unknown]
  - Water intoxication [Unknown]
